FAERS Safety Report 7982538-3 (Version None)
Quarter: 2011Q4

REPORT INFORMATION
  Report Type: 
  Country: None (occurrence: None)
  Receive Date: 20111215
  Receipt Date: 20111212
  Transmission Date: 20120403
  Serious: No
  Sender: FDA-Public Use
  Company Number: GB-ROCHE-1017186

PATIENT
  Sex: Female
  Weight: 64 kg

DRUGS (1)
  1. ISOTRETINOIN [Suspect]
     Indication: ACNE
     Route: 048
     Dates: start: 20110928, end: 20111121

REACTIONS (2)
  - ABORTION INDUCED [None]
  - PREGNANCY [None]
